FAERS Safety Report 8241530-4 (Version None)
Quarter: 2012Q1

REPORT INFORMATION
  Report Type: 
  Country: None (occurrence: None)
  Receive Date: 20120328
  Receipt Date: 20120314
  Transmission Date: 20120608
  Serious: Yes (Hospitalization)
  Sender: FDA-Public Use
  Company Number: NL-ROCHE-803722

PATIENT
  Sex: Male

DRUGS (7)
  1. PANTOPRAZOLE [Concomitant]
  2. METOCLOPRAMIDE [Concomitant]
  3. VEMURAFENIB [Suspect]
     Indication: METASTATIC MALIGNANT MELANOMA
     Route: 048
     Dates: start: 20110824, end: 20120307
  4. ASCAL [Concomitant]
     Dates: start: 20080201
  5. ATORVASTATIN [Concomitant]
  6. VEMURAFENIB [Suspect]
     Dosage: PATIENT WITHDRAWN FROM STUDY ON 07/MAR/2012
     Route: 048
  7. PERINDOPRIL [Concomitant]

REACTIONS (2)
  - PYREXIA [None]
  - MALAISE [None]
